FAERS Safety Report 11849810 (Version 12)
Quarter: 2018Q4

REPORT INFORMATION
  Report Type: Report from Study
  Country: None (occurrence: CZ)
  Receive Date: 20151218
  Receipt Date: 20181207
  Transmission Date: 20190204
  Serious: Yes (Hospitalization, Disabling)
  Sender: FDA-Public Use
  Company Number: CZ-ABBVIE-15P-217-1521337-00

PATIENT
  Age: 12 Year
  Sex: Female
  Weight: 28 kg

DRUGS (8)
  1. HUMIRA [Suspect]
     Active Substance: ADALIMUMAB
     Indication: CROHN^S DISEASE
     Route: 058
     Dates: start: 20150115, end: 20150116
  2. AZATHIOPRINE. [Suspect]
     Active Substance: AZATHIOPRINE
     Indication: CROHN^S DISEASE
     Route: 048
     Dates: start: 20130416
  3. AZATHIOPRINE. [Suspect]
     Active Substance: AZATHIOPRINE
     Route: 048
     Dates: start: 20150317, end: 20150519
  4. HUMIRA [Suspect]
     Active Substance: ADALIMUMAB
     Route: 058
     Dates: start: 20151228, end: 20160110
  5. AZATHIOPRINE. [Suspect]
     Active Substance: AZATHIOPRINE
     Route: 048
     Dates: start: 20141016, end: 20150317
  6. HUMIRA [Suspect]
     Active Substance: ADALIMUMAB
     Route: 058
     Dates: start: 20150129, end: 20151127
  7. AZATHIOPRINE. [Suspect]
     Active Substance: AZATHIOPRINE
     Route: 048
     Dates: start: 20150519, end: 20151207
  8. AZATHIOPRINE. [Suspect]
     Active Substance: AZATHIOPRINE
     Route: 048
     Dates: start: 20151228, end: 20170106

REACTIONS (4)
  - Herpes zoster [Recovered/Resolved]
  - Antinuclear antibody positive [Recovered/Resolved]
  - Double stranded DNA antibody positive [Recovered/Resolved]
  - Failure to thrive [Recovered/Resolved]

NARRATIVE: CASE EVENT DATE: 20151030
